FAERS Safety Report 5332248-6 (Version None)
Quarter: 2007Q2

REPORT INFORMATION
  Report Type: 
  Country: None (occurrence: None)
  Receive Date: 20070306
  Receipt Date: 20060508
  Transmission Date: 20071010
  Serious: Yes (Other)
  Sender: FDA-Public Use
  Company Number: A03200603022

PATIENT
  Age: 70 Year
  Sex: Male

DRUGS (9)
  1. PLAVIX [Suspect]
     Indication: COAGULOPATHY
     Dosage: 75 MG QD - ORAL
     Route: 048
     Dates: start: 20050309, end: 20060315
  2. PLAVIX [Suspect]
     Indication: CORONARY ARTERY DISEASE
     Dosage: 75 MG QD - ORAL
     Route: 048
     Dates: start: 20050309, end: 20060315
  3. HUMULIN N [Suspect]
     Indication: DIABETES MELLITUS NON-INSULIN-DEPENDENT
     Dosage: 56 UNK - SUBCUTANEOUS
     Route: 058
     Dates: start: 20011211
  4. METFORMIN HCL [Concomitant]
  5. AMITRIPTYLINE HYDROCHLORIDE [Concomitant]
  6. ESOMEPRAZOLE MAGNESIUM [Concomitant]
  7. ACETYLSALICYLIC ACID SRT [Concomitant]
  8. SIMVASTATIN [Concomitant]
  9. LISINOPRIL [Concomitant]

REACTIONS (3)
  - CHEST PAIN [None]
  - NAUSEA [None]
  - STENT OCCLUSION [None]
